FAERS Safety Report 7940660-1 (Version None)
Quarter: 2011Q4

REPORT INFORMATION
  Report Type: 
  Country: None (occurrence: None)
  Receive Date: 20111108
  Receipt Date: 20100903
  Transmission Date: 20120403
  Serious: Yes (Hospitalization, Other)
  Sender: FDA-Public Use
  Company Number: PHHY2010US59146

PATIENT
  Age: 72 Year
  Sex: Female

DRUGS (8)
  1. POTASSIUM CHLORIDE [Concomitant]
  2. REVLIMID [Suspect]
     Indication: MULTIPLE MYELOMA
     Dosage: 25 MG 21 DAYS EVERY MONTH, ORAL
     Route: 048
     Dates: start: 20100209, end: 20100625
  3. OXYCODONE HCL [Concomitant]
  4. THYROID TAB [Concomitant]
  5. METOPROLOL TARTRATE [Concomitant]
  6. ZOMETA [Suspect]
     Indication: MULTIPLE MYELOMA
     Dosage: 4 MG, INTRAVENOUS
     Route: 042
     Dates: start: 20100603
  7. LOVASTATIN [Concomitant]
  8. COENZYME Q10 [Concomitant]

REACTIONS (4)
  - DIALYSIS [None]
  - RENAL FAILURE ACUTE [None]
  - PANCYTOPENIA [None]
  - ASTHENIA [None]
